FAERS Safety Report 11283325 (Version 2)
Quarter: 2015Q3

REPORT INFORMATION
  Report Type: Spontaneous
  Country: US (occurrence: US)
  Receive Date: 20150720
  Receipt Date: 20150824
  Transmission Date: 20151125
  Serious: Yes (Hospitalization)
  Sender: FDA-Public Use
  Company Number: US-BAYER-2015-382510

PATIENT
  Age: 28 Year
  Sex: Female
  Weight: 68.93 kg

DRUGS (2)
  1. TETRAHYDROCANNABINOL [Concomitant]
     Active Substance: DRONABINOL
  2. MIRENA [Suspect]
     Active Substance: LEVONORGESTREL
     Indication: CONTRACEPTION
     Dosage: 20 MCG/24HR, CONT
     Route: 015
     Dates: start: 20120426, end: 20130710

REACTIONS (9)
  - Ovarian cyst [None]
  - Uterine perforation [None]
  - Device dislocation [None]
  - Depression [None]
  - Menorrhagia [None]
  - Emotional distress [None]
  - Injury [None]
  - Pain [None]
  - Device issue [None]

NARRATIVE: CASE EVENT DATE: 2012
